FAERS Safety Report 6803490-X (Version None)
Quarter: 2010Q2

REPORT INFORMATION
  Report Type: 
  Country: None (occurrence: None)
  Receive Date: 20100628
  Receipt Date: 20100625
  Transmission Date: 20101027
  Serious: Yes (Hospitalization)
  Sender: FDA-Public Use
  Company Number: GXKR2010DE04432

PATIENT
  Age: 79 Year
  Sex: Female
  Weight: 56 kg

DRUGS (4)
  1. ALENDRONIC ACID (NGX) [Suspect]
     Indication: OSTEOPOROSIS
     Dosage: 70 MG, QD
     Route: 048
     Dates: start: 20070101
  2. CALCIUM, COLECALCIFEROL (NGX) [Suspect]
     Indication: OSTEOPOROSIS
     Dosage: 600 MG CALCIUM/ 400 IR TWICE A DAY
     Route: 048
     Dates: start: 20070101, end: 20100305
  3. EXELON [Suspect]
     Indication: DEMENTIA
     Dosage: 4.6 MG/24 H
     Route: 062
     Dates: start: 20090901, end: 20100305
  4. RAMIPRIL [Concomitant]
     Indication: HYPERTENSION
     Dosage: 10 MG, QD
     Route: 048

REACTIONS (2)
  - HYPERCALCAEMIA [None]
  - NAUSEA [None]
